FAERS Safety Report 18272219 (Version 1)
Quarter: 2020Q3

REPORT INFORMATION
  Report Type: Report from Study
  Country: US (occurrence: US)
  Receive Date: 20200916
  Receipt Date: 20200916
  Transmission Date: 20201103
  Serious: Yes (Hospitalization)
  Sender: FDA-Public Use
  Company Number: US-BRISTOL-MYERS SQUIBB COMPANY-BMS-2020-073561

PATIENT
  Age: 82 Year
  Sex: Female
  Weight: 52.15 kg

DRUGS (6)
  1. COREG [Concomitant]
     Active Substance: CARVEDILOL
     Indication: PRODUCT USED FOR UNKNOWN INDICATION
     Route: 065
  2. APIXABAN [Suspect]
     Active Substance: APIXABAN
     Indication: CEREBROVASCULAR ACCIDENT PROPHYLAXIS
     Dosage: 2.5 MILLIGRAM, BID
     Route: 048
     Dates: start: 2020
  3. VITAMIN E AL [Concomitant]
     Active Substance: TOCOPHEROL
     Indication: PRODUCT USED FOR UNKNOWN INDICATION
     Dosage: UNK
     Route: 065
  4. BIOTIN [Concomitant]
     Active Substance: BIOTIN
     Indication: NAIL DISORDER
     Route: 065
  5. BIOTIN [Concomitant]
     Active Substance: BIOTIN
     Indication: BONE DISORDER
  6. BIOTIN [Concomitant]
     Active Substance: BIOTIN
     Indication: HAIR DISORDER

REACTIONS (5)
  - Atrial flutter [Unknown]
  - Wound haemorrhage [Unknown]
  - Intentional product misuse [Unknown]
  - Rash [Unknown]
  - Animal scratch [Unknown]

NARRATIVE: CASE EVENT DATE: 20200906
